FAERS Safety Report 22950990 (Version 2)
Quarter: 2025Q2

REPORT INFORMATION
  Report Type: Spontaneous
  Country: FR (occurrence: FR)
  Receive Date: 20230916
  Receipt Date: 20250411
  Transmission Date: 20250717
  Serious: Yes (Life-Threatening)
  Sender: SANDOZ
  Company Number: None

PATIENT
  Age: 46 Year
  Sex: Female
  Weight: 80 kg

DRUGS (14)
  1. DIPRIVAN [Suspect]
     Active Substance: PROPOFOL
     Indication: Induction of anaesthesia
     Route: 041
     Dates: start: 20200106, end: 20200106
  2. ANAPEINE [Suspect]
     Active Substance: ROPIVACAINE HYDROCHLORIDE
     Indication: Local anaesthesia
     Route: 014
     Dates: start: 20200106, end: 20200106
  3. BRIDION [Suspect]
     Active Substance: SUGAMMADEX SODIUM
     Indication: Neuromuscular blockade reversal
     Route: 041
     Dates: start: 20200106, end: 20200106
  4. CEFAZOLIN [Suspect]
     Active Substance: CEFAZOLIN
     Indication: Infection prophylaxis
     Route: 041
     Dates: start: 20200106, end: 20200106
  5. DESFLURANE [Suspect]
     Active Substance: DESFLURANE
     Indication: Anaesthesia
     Route: 055
     Dates: start: 20200106, end: 20200106
  6. ROCURONIUM BROMIDE [Suspect]
     Active Substance: ROCURONIUM BROMIDE
     Indication: Neuromuscular blocking therapy
     Route: 041
     Dates: start: 20200106, end: 20200106
  7. MORPHINE [Suspect]
     Active Substance: MORPHINE
     Indication: Analgesic therapy
     Route: 041
     Dates: start: 20200106, end: 20200106
  8. NOREPINEPHRINE BITARTRATE [Suspect]
     Active Substance: NOREPINEPHRINE BITARTRATE
     Indication: Vasopressive therapy
     Route: 041
     Dates: start: 20200106, end: 20200106
  9. PERFALGAN [Suspect]
     Active Substance: ACETAMINOPHEN
     Indication: Analgesic intervention supportive therapy
     Route: 041
     Dates: start: 20200106, end: 20200106
  10. KETOPROFEN [Suspect]
     Active Substance: KETOPROFEN
     Indication: Product used for unknown indication
     Route: 041
     Dates: start: 20200106, end: 20200106
  11. SUFENTANIL [Suspect]
     Active Substance: SUFENTANIL
     Indication: Induction of anaesthesia
     Route: 041
     Dates: start: 20200106, end: 20200106
  12. XYLOCAINE [Suspect]
     Active Substance: LIDOCAINE HYDROCHLORIDE
     Indication: Local anaesthesia
     Route: 014
     Dates: start: 20200106, end: 20200106
  13. ONDANSETRON [Suspect]
     Active Substance: ONDANSETRON
     Indication: Prophylaxis of nausea and vomiting
     Route: 041
     Dates: start: 20200106, end: 20200106
  14. LEVOTHYROXINE [Concomitant]
     Active Substance: LEVOTHYROXINE
     Indication: Product used for unknown indication
     Route: 065

REACTIONS (1)
  - Anaphylactic shock [Recovered/Resolved with Sequelae]

NARRATIVE: CASE EVENT DATE: 20200106
